FAERS Safety Report 13896499 (Version 1)
Quarter: 2017Q3

REPORT INFORMATION
  Report Type: Spontaneous
  Country: US (occurrence: US)
  Receive Date: 20170821
  Receipt Date: 20170821
  Transmission Date: 20171127
  Serious: Yes (Hospitalization)
  Sender: FDA-Public Use
  Company Number: None

PATIENT
  Age: 62 Year
  Sex: Male
  Weight: 66.8 kg

DRUGS (2)
  1. IBUPROFEN. [Concomitant]
     Active Substance: IBUPROFEN
  2. RIVAROXOBAN [Suspect]
     Active Substance: RIVAROXABAN
     Route: 048

REACTIONS (2)
  - Rectal haemorrhage [None]
  - Haemorrhoid operation [None]

NARRATIVE: CASE EVENT DATE: 20170819
